FAERS Safety Report 7741112-4 (Version None)
Quarter: 2011Q3

REPORT INFORMATION
  Report Type: 
  Country: None (occurrence: None)
  Receive Date: 20110909
  Receipt Date: 20110907
  Transmission Date: 20111222
  Serious: Yes (Hospitalization, Other)
  Sender: FDA-Public Use
  Company Number: US-PFIZER INC-2010137579

PATIENT
  Sex: Male

DRUGS (7)
  1. BUPROPION [Concomitant]
     Indication: DEPRESSION
     Dosage: UNK
     Dates: start: 20060211, end: 20090427
  2. AZITHROMYCIN [Concomitant]
     Indication: BACTERIAL INFECTION
     Dosage: UNK
     Dates: start: 20080317, end: 20090212
  3. CYMBALTA [Concomitant]
     Indication: DEPRESSION
  4. AMOXICILLIN [Concomitant]
     Indication: BACTERIAL INFECTION
     Dosage: UNK
     Dates: start: 20060810, end: 20090424
  5. ECONAZOLE NITRATE [Concomitant]
     Indication: FUNGAL INFECTION
     Dosage: UNK
     Dates: start: 20080629, end: 20090114
  6. CHANTIX [Suspect]
     Indication: SMOKING CESSATION THERAPY
     Dosage: 0.5 MG/1.0 MG
     Dates: start: 20070205, end: 20070501
  7. CYMBALTA [Concomitant]
     Indication: ANXIETY
     Dosage: UNK
     Dates: start: 20070410, end: 20081027

REACTIONS (8)
  - DEPRESSION [None]
  - EMOTIONAL DISTRESS [None]
  - ANXIETY [None]
  - SUICIDE ATTEMPT [None]
  - MENTAL DISORDER [None]
  - ABNORMAL BEHAVIOUR [None]
  - INTENTIONAL OVERDOSE [None]
  - AGGRESSION [None]
